FAERS Safety Report 9184402 (Version 1)
Quarter: 2012Q4

REPORT INFORMATION
  Report Type: 
  Country: US (occurrence: US)
  Receive Date: 20121101
  Receipt Date: 20121101
  Transmission Date: 20130627
  Serious: Yes (Other)
  Sender: FDA-Public Use
  Company Number: CHPA2012US022470

PATIENT
  Age: 70 Year
  Sex: Male

DRUGS (1)
  1. BENEFIBER W/ WHEAT DEXTRIN [Suspect]
     Indication: NUTRITIONAL SUPPORT
     Dosage: 2 HEAPING TSP, QD
     Route: 048
     Dates: end: 20121022

REACTIONS (3)
  - Asthma [Not Recovered/Not Resolved]
  - Incorrect dose administered [Unknown]
  - Expired drug administered [Unknown]
